FAERS Safety Report 23848996 (Version 1)
Quarter: 2024Q2

REPORT INFORMATION
  Report Type: Spontaneous
  Country: US (occurrence: None)
  Receive Date: 20240511
  Receipt Date: 20240511
  Transmission Date: 20240716
  Serious: No
  Sender: FDA-Public Use
  Company Number: None

PATIENT
  Sex: Female
  Weight: 71.2 kg

DRUGS (1)
  1. PEMBROLIZUMAB [Suspect]
     Active Substance: PEMBROLIZUMAB
     Dates: end: 20240214

REACTIONS (4)
  - Breast cancer [None]
  - Breast mass [None]
  - Metastases to lymph nodes [None]
  - Goitre [None]

NARRATIVE: CASE EVENT DATE: 20240501
